FAERS Safety Report 15646849 (Version 1)
Quarter: 2018Q4

REPORT INFORMATION
  Report Type: Spontaneous
  Country: JP (occurrence: JP)
  Receive Date: 20181122
  Receipt Date: 20181122
  Transmission Date: 20190205
  Serious: Yes (Other)
  Sender: FDA-Public Use
  Company Number: JP-TAKEDA-2016MPI006580

PATIENT

DRUGS (3)
  1. VELCADE [Suspect]
     Active Substance: BORTEZOMIB
     Indication: PLASMA CELL MYELOMA
     Dosage: 1.3 MG/M2, UNK
     Route: 058
  2. CYCLOPHOSPHAMIDE. [Suspect]
     Active Substance: CYCLOPHOSPHAMIDE
     Indication: PLASMA CELL MYELOMA
     Dosage: UNK
     Route: 065
  3. THALIDOMIDE [Suspect]
     Active Substance: THALIDOMIDE
     Indication: PLASMA CELL MYELOMA
     Dosage: UNK
     Route: 048

REACTIONS (15)
  - Hepatic function abnormal [Unknown]
  - Rash [Unknown]
  - Neutropenia [Unknown]
  - Pneumonia [Unknown]
  - Nausea [Unknown]
  - Altered state of consciousness [Unknown]
  - Anaemia [Unknown]
  - Thrombocytopenia [Unknown]
  - Constipation [Unknown]
  - Neuropathy peripheral [Unknown]
  - Hyponatraemia [Unknown]
  - Hyperglycaemia [Unknown]
  - Infection [Unknown]
  - Cardiac failure [Unknown]
  - Diarrhoea [Unknown]
